FAERS Safety Report 9805695 (Version 1)
Quarter: 2014Q1

REPORT INFORMATION
  Report Type: Spontaneous
  Country: US (occurrence: None)
  Receive Date: 20140107
  Receipt Date: 20140107
  Transmission Date: 20141002
  Serious: Yes (Death)
  Sender: FDA-Public Use
  Company Number: 2013P1022312

PATIENT
  Age: 19 Year
  Sex: Female

DRUGS (5)
  1. FENTANYL [Suspect]
     Dosage: ;TDER
  2. ETHANOL [Suspect]
  3. DIAZEPAM [Suspect]
  4. MEMA (ECSTASY) [Suspect]
  5. UNSPECIFIED FORMULATIN OF TETRAHYDROCANNASINOL (THC) [Suspect]

REACTIONS (1)
  - Death [None]
